FAERS Safety Report 15603170 (Version 2)
Quarter: 2020Q3

REPORT INFORMATION
  Report Type: Report from Study
  Country: US (occurrence: US)
  Receive Date: 20181109
  Receipt Date: 20181116
  Transmission Date: 20201104
  Serious: Yes (Death)
  Sender: FDA-Public Use
  Company Number: US-PFIZER INC-2018457234

PATIENT
  Age: 75 Year
  Sex: Male
  Weight: 66.4 kg

DRUGS (1)
  1. TALAZOPARIB. [Suspect]
     Active Substance: TALAZOPARIB
     Indication: SQUAMOUS CELL CARCINOMA OF LUNG
     Dosage: 1000 MCG, QD, CYCLE = 21 DAYS
     Route: 048
     Dates: start: 20180529, end: 20180706

REACTIONS (1)
  - Death [Fatal]

NARRATIVE: CASE EVENT DATE: 20180706
